FAERS Safety Report 4876742-0 (Version None)
Quarter: 2006Q1

REPORT INFORMATION
  Report Type: 
  Country: None (occurrence: None)
  Receive Date: 20060110
  Receipt Date: 20051230
  Transmission Date: 20060701
  Serious: Yes (Hospitalization, Disabling)
  Sender: FDA-Public Use
  Company Number: US-MERCK-0601USA00133

PATIENT
  Age: 64 Year
  Sex: Male
  Weight: 110 kg

DRUGS (2)
  1. VIOXX [Suspect]
     Indication: ARTHRALGIA
     Route: 048
     Dates: start: 20001114, end: 20020702
  2. ASPIRIN [Concomitant]
     Route: 048

REACTIONS (8)
  - ANGINA PECTORIS [None]
  - BACK DISORDER [None]
  - BACK PAIN [None]
  - CHEST DISCOMFORT [None]
  - HAEMORRHAGE [None]
  - MYOCARDIAL INFARCTION [None]
  - PNEUMONIA [None]
  - RESPIRATORY DISORDER [None]
